FAERS Safety Report 9360015 (Version 1)
Quarter: 2013Q2

REPORT INFORMATION
  Report Type: Spontaneous
  Country: CO (occurrence: CO)
  Receive Date: 20130621
  Receipt Date: 20130621
  Transmission Date: 20140414
  Serious: Yes (Other)
  Sender: FDA-Public Use
  Company Number: PHHY2013CO060888

PATIENT
  Age: 13 Year
  Sex: 0

DRUGS (3)
  1. CICLOSPORIN [Suspect]
     Indication: NEPHROTIC SYNDROME
  2. CYCLOPHOSPHAMIDE [Suspect]
  3. MYCOPHENOLATE MOFETIL [Concomitant]

REACTIONS (2)
  - Renal impairment [Recovered/Resolved]
  - Glomerulonephritis proliferative [Unknown]
